FAERS Safety Report 15547139 (Version 1)
Quarter: 2018Q4

REPORT INFORMATION
  Report Type: Report from Study
  Country: ES (occurrence: ES)
  Receive Date: 20181024
  Receipt Date: 20181024
  Transmission Date: 20190205
  Serious: Yes (Other)
  Sender: FDA-Public Use
  Company Number: ES-TEVA-2018-ES-967920

PATIENT
  Age: 85 Year
  Sex: Female

DRUGS (5)
  1. IPRATROPIO (1067A) [Suspect]
     Active Substance: IPRATROPIUM BROMIDE
     Indication: RESPIRATORY FAILURE
     Dosage: EN URGENCIAS: EL 25/10/2017 LE ADMINISTRARON DOS DOSIS ?NICAS Y DESDE EL 26/10/2017 500MCG C/6H NEBU
     Route: 055
     Dates: start: 20171025
  2. FUROSEMIDA (1615A) [Concomitant]
     Active Substance: FUROSEMIDE
     Route: 042
     Dates: start: 20171026
  3. AMOXICILINA + ?CIDO CLAVUL?NICO [Concomitant]
     Active Substance: AMOXICILLIN\CLAVULANIC ACID
     Dosage: EN URGENCIAS
     Route: 042
     Dates: start: 20171026
  4. METILPREDNISOLONA (888A) [Concomitant]
     Active Substance: METHYLPREDNISOLONE
     Dosage: EN URGENCIAS: DOSIS ?NICA
     Route: 042
     Dates: start: 20171025, end: 20171025
  5. SALBUAIR 5 MG SOLUCION PARA INHALACION POR NEBULIZADOR [Suspect]
     Active Substance: ALBUTEROL SULFATE
     Indication: RESPIRATORY FAILURE
     Dosage: 2.5MG C/6H NEBULIZACI?N. EN URGENCIAS: EL 25/10/2017 LE ADMINISTRARON DOS DOSIS ?NICAS Y EL 26/10/20
     Route: 055
     Dates: start: 20171025, end: 20171026

REACTIONS (1)
  - Sinus tachycardia [Recovered/Resolved]

NARRATIVE: CASE EVENT DATE: 20171026
